FAERS Safety Report 8256080-9 (Version None)
Quarter: 2012Q2

REPORT INFORMATION
  Report Type: 
  Country: None (occurrence: None)
  Receive Date: 20120403
  Receipt Date: 20120327
  Transmission Date: 20120825
  Serious: Yes (Other)
  Sender: FDA-Public Use
  Company Number: US-PFIZER INC-2011273436

PATIENT
  Sex: Female
  Weight: 65.76 kg

DRUGS (3)
  1. LYRICA [Suspect]
     Indication: FIBROMYALGIA
     Dosage: 75 MG, 3X/DAY
     Route: 048
     Dates: start: 20111101, end: 20111101
  2. LYRICA [Suspect]
     Indication: NEUROPATHY PERIPHERAL
     Dosage: 100 MG, 3X/DAY
     Dates: start: 20111101, end: 20111101
  3. LYRICA [Suspect]
     Dosage: 300 MG, 3X/DAY
     Dates: start: 20111101

REACTIONS (8)
  - ANXIETY [None]
  - DRUG INEFFECTIVE [None]
  - OVERDOSE [None]
  - VISION BLURRED [None]
  - PANIC ATTACK [None]
  - BLISTER [None]
  - PAIN [None]
  - TREMOR [None]
